FAERS Safety Report 11925104 (Version 6)
Quarter: 2018Q2

REPORT INFORMATION
  Report Type: Report from Study
  Country: JP (occurrence: JP)
  Receive Date: 20160118
  Receipt Date: 20180415
  Transmission Date: 20180711
  Serious: Yes (Death, Hospitalization, Other)
  Sender: FDA-Public Use
  Company Number: PHJP2016JP000946

PATIENT
  Age: 70 Year
  Sex: Male

DRUGS (3)
  1. VELCADE [Concomitant]
     Active Substance: BORTEZOMIB
     Indication: PLASMA CELL MYELOMA
     Dosage: 1.3 MG/M2, QW2
     Route: 065
     Dates: start: 20151222, end: 20160202
  2. FARYDAK [Suspect]
     Active Substance: PANOBINOSTAT
     Indication: PLASMA CELL MYELOMA
     Dosage: 20 MG, QD
     Route: 048
     Dates: start: 20151222, end: 20160202
  3. DEXAMETHASONE. [Concomitant]
     Active Substance: DEXAMETHASONE
     Indication: PLASMA CELL MYELOMA
     Dosage: UNK
     Route: 065

REACTIONS (6)
  - Haemoglobin decreased [Unknown]
  - Nausea [Recovering/Resolving]
  - Malignant neoplasm progression [Fatal]
  - Malaise [Recovering/Resolving]
  - Platelet count decreased [Recovering/Resolving]
  - Plasma cell myeloma [Fatal]

NARRATIVE: CASE EVENT DATE: 20151222
